FAERS Safety Report 13297914 (Version 2)
Quarter: 2017Q1

REPORT INFORMATION
  Report Type: Report from Study
  Country: FR (occurrence: FR)
  Receive Date: 20170306
  Receipt Date: 20170324
  Transmission Date: 20170428
  Serious: Yes (Hospitalization)
  Sender: FDA-Public Use
  Company Number: PHHO2017FR004195

PATIENT
  Age: 30 Year
  Sex: Male
  Weight: 60.5 kg

DRUGS (7)
  1. KETOPROFENE [Concomitant]
     Active Substance: KETOPROFEN
     Indication: PAIN
     Dosage: 100 MG, BID
     Route: 048
     Dates: start: 20160622
  2. INSTANYL [Concomitant]
     Active Substance: FENTANYL
     Indication: PAIN
     Dosage: 100 MG, PRN
     Route: 048
     Dates: start: 20160622
  3. PANTOPRAZOLE [Concomitant]
     Active Substance: PANTOPRAZOLE SODIUM
     Indication: GASTROOESOPHAGEAL REFLUX DISEASE
     Dosage: 20 MG, QD
     Route: 048
     Dates: start: 20160622
  4. ACTISKENAN [Concomitant]
     Active Substance: MORPHINE SULFATE
     Indication: PAIN
     Dosage: 40 MG, PRN
     Route: 048
     Dates: start: 20161117
  5. LDK378 [Suspect]
     Active Substance: CERITINIB
     Indication: NEOPLASM
     Dosage: 600 MG, QD
     Route: 048
     Dates: start: 20161214, end: 20170129
  6. SKENAN [Concomitant]
     Active Substance: MORPHINE SULFATE
     Indication: PAIN
     Dosage: 20 MG, BID
     Route: 048
     Dates: start: 20160913
  7. LEVOTHYROX [Concomitant]
     Active Substance: LEVOTHYROXINE
     Indication: HYPOTHYROIDISM
     Dosage: 25 MG, QD
     Route: 048
     Dates: start: 20160811

REACTIONS (1)
  - Pemphigus [Recovering/Resolving]

NARRATIVE: CASE EVENT DATE: 20170209
